FAERS Safety Report 10869323 (Version 1)
Quarter: 2015Q1

REPORT INFORMATION
  Report Type: Spontaneous
  Country: CH (occurrence: CH)
  Receive Date: 20150226
  Receipt Date: 20150226
  Transmission Date: 20150721
  Serious: Yes (Other)
  Sender: FDA-Public Use
  Company Number: CH-ROCHE-1543474

PATIENT
  Sex: Female

DRUGS (6)
  1. SOMNIUM (SWITZERLAND) [Suspect]
     Active Substance: DIPHENHYDRAMINE\LORAZEPAM
     Indication: PRODUCT USED FOR UNKNOWN INDICATION
     Dosage: LORAZEPAM 1 MG, DIPHENHYDRAMINE 25 MG
     Route: 048
  2. ZOLOFT [Suspect]
     Active Substance: SERTRALINE HYDROCHLORIDE
     Indication: BORDERLINE PERSONALITY DISORDER
     Route: 048
  3. TRITTICO [Suspect]
     Active Substance: TRAZODONE HYDROCHLORIDE
     Indication: BORDERLINE PERSONALITY DISORDER
     Route: 048
  4. ADALAT CC [Concomitant]
     Active Substance: NIFEDIPINE
     Indication: TOCOLYSIS
     Route: 048
     Dates: start: 20141014
  5. RIVOTRIL [Suspect]
     Active Substance: CLONAZEPAM
     Indication: BORDERLINE PERSONALITY DISORDER
     Route: 048
     Dates: start: 2013
  6. TRACTOCILE [Concomitant]
     Active Substance: ATOSIBAN
     Indication: TOCOLYSIS
     Route: 042
     Dates: start: 20141012, end: 20141013

REACTIONS (4)
  - Polyhydramnios [Recovered/Resolved]
  - Maternal exposure timing unspecified [Unknown]
  - Premature delivery [None]
  - Caesarean section [None]

NARRATIVE: CASE EVENT DATE: 2014
